FAERS Safety Report 19230383 (Version 1)
Quarter: 2021Q2

REPORT INFORMATION
  Report Type: Spontaneous
  Country: US (occurrence: US)
  Receive Date: 20210507
  Receipt Date: 20210507
  Transmission Date: 20210717
  Serious: Yes (Other)
  Sender: FDA-Public Use
  Company Number: US-STRIDES ARCOLAB LIMITED-2021SP005224

PATIENT

DRUGS (4)
  1. RANITIDINE. [Suspect]
     Active Substance: RANITIDINE
     Dosage: UNK, (ZANTAC)
     Route: 065
     Dates: start: 2010, end: 2012
  2. RANITIDINE. [Suspect]
     Active Substance: RANITIDINE
     Indication: PRODUCT USED FOR UNKNOWN INDICATION
     Dosage: UNK, (ZANTAC)
     Route: 065
     Dates: start: 2005, end: 2008
  3. RANITIDINE. [Suspect]
     Active Substance: RANITIDINE
     Dosage: UNK, (RANITIDINE)
     Route: 065
     Dates: start: 2005, end: 2008
  4. RANITIDINE. [Suspect]
     Active Substance: RANITIDINE
     Dosage: UNK, (RANITIDINE)
     Route: 065
     Dates: start: 2010, end: 2012

REACTIONS (1)
  - Bladder cancer [Unknown]

NARRATIVE: CASE EVENT DATE: 201208
